FAERS Safety Report 6349842-6 (Version None)
Quarter: 2009Q3

REPORT INFORMATION
  Report Type: 
  Country: None (occurrence: None)
  Receive Date: 20090911
  Receipt Date: 20090904
  Transmission Date: 20100115
  Serious: Yes (Other)
  Sender: FDA-Public Use
  Company Number: PHEH2009US08211

PATIENT
  Sex: Female

DRUGS (3)
  1. GLEEVEC [Suspect]
     Indication: GASTRIC CANCER
     Dosage: 400 MG, QD
     Route: 048
     Dates: start: 20090228
  2. GLEEVEC [Suspect]
     Indication: GASTROINTESTINAL STROMAL TUMOUR
  3. NASONEX [Concomitant]
     Dosage: UNK

REACTIONS (6)
  - BACK INJURY [None]
  - BLOOD THYROID STIMULATING HORMONE DECREASED [None]
  - INCONTINENCE [None]
  - NOCTURIA [None]
  - POLLAKIURIA [None]
  - WEIGHT DECREASED [None]
